FAERS Safety Report 8776531 (Version 1)
Quarter: 2012Q4

REPORT INFORMATION
  Report Type: 
  Country: US (occurrence: US)
  Receive Date: 20120910
  Receipt Date: 20120910
  Transmission Date: 20130627
  Serious: No
  Sender: FDA-Public Use
  Company Number: US-PFIZER INC-2012219412

PATIENT
  Age: 53 Year
  Sex: Female

DRUGS (2)
  1. GABAPENTIN [Suspect]
     Indication: COMPLEX REGIONAL PAIN SYNDROME
     Dosage: 1200 mg, 3x/day
     Route: 048
  2. GEMFIBROZIL [Suspect]
     Dosage: UNK
     Route: 048
     Dates: start: 20090909, end: 20090918

REACTIONS (6)
  - Drug dispensing error [Unknown]
  - Malaise [Not Recovered/Not Resolved]
  - Nausea [Not Recovered/Not Resolved]
  - Dyspepsia [Not Recovered/Not Resolved]
  - Vertigo [Not Recovered/Not Resolved]
  - Drug effect prolonged [Not Recovered/Not Resolved]
